FAERS Safety Report 9810959 (Version 3)
Quarter: 2015Q1

REPORT INFORMATION
  Report Type: Spontaneous
  Country: US (occurrence: US)
  Receive Date: 20140110
  Receipt Date: 20150202
  Transmission Date: 20150721
  Serious: Yes (Other)
  Sender: FDA-Public Use
  Company Number: US-SANOFI-AVENTIS-2013SA023756

PATIENT
  Age: 54 Year
  Sex: Male

DRUGS (2)
  1. PLAVIX [Suspect]
     Active Substance: CLOPIDOGREL BISULFATE
     Indication: CEREBROVASCULAR ACCIDENT
     Route: 048
     Dates: start: 200306, end: 201103
  2. PLAVIX [Suspect]
     Active Substance: CLOPIDOGREL BISULFATE
     Indication: TRANSIENT ISCHAEMIC ATTACK
     Route: 048
     Dates: start: 200306, end: 201103

REACTIONS (7)
  - Seizure [Unknown]
  - Mental impairment [Unknown]
  - Spinal cord injury lumbar [Not Recovered/Not Resolved]
  - Stress [Unknown]
  - Cerebral haemorrhage [Unknown]
  - Disability [Unknown]
  - Anxiety [Unknown]

NARRATIVE: CASE EVENT DATE: 20110306
